FAERS Safety Report 11221605 (Version 3)
Quarter: 2015Q3

REPORT INFORMATION
  Report Type: Spontaneous
  Country: US (occurrence: US)
  Receive Date: 20150626
  Receipt Date: 20150923
  Transmission Date: 20151125
  Serious: No
  Sender: FDA-Public Use
  Company Number: US-PFIZER INC-2015214303

PATIENT
  Age: 71 Year
  Sex: Female
  Weight: 98 kg

DRUGS (2)
  1. CELEBREX [Suspect]
     Active Substance: CELECOXIB
     Indication: FRACTURE PAIN
     Dosage: UNK
     Dates: start: 1999
  2. VIOXX [Concomitant]
     Active Substance: ROFECOXIB
     Dosage: UNK

REACTIONS (1)
  - Foot fracture [Recovered/Resolved]

NARRATIVE: CASE EVENT DATE: 2009
